FAERS Safety Report 7469083-9 (Version None)
Quarter: 2011Q2

REPORT INFORMATION
  Report Type: 
  Country: None (occurrence: None)
  Receive Date: 20110429
  Receipt Date: 20110411
  Transmission Date: 20111010
  Serious: Yes (Other)
  Sender: FDA-Public Use
  Company Number: 20110153

PATIENT
  Age: 51 Year
  Sex: Female
  Weight: 79.3795 kg

DRUGS (4)
  1. SODIUM BICARBONATE [Suspect]
     Indication: LOCAL ANAESTHESIA
     Dosage: 32 ML IN 1000 ML
     Dates: start: 20101119, end: 20101119
  2. SODIUM BICARBONATE [Suspect]
     Indication: LOCAL ANAESTHESIA
     Dosage: 32 ML IN 1000 ML
     Dates: start: 20101227, end: 20101227
  3. LIDOCAINE W/ EPINEPHRINE [Concomitant]
  4. NORMAL SALINE [Concomitant]

REACTIONS (5)
  - OFF LABEL USE [None]
  - INJECTION SITE ERYTHEMA [None]
  - INJECTION SITE PAIN [None]
  - INJECTION SITE SWELLING [None]
  - PRODUCT QUALITY ISSUE [None]
